FAERS Safety Report 21153744 (Version 2)
Quarter: 2022Q3

REPORT INFORMATION
  Report Type: Spontaneous
  Country: FR (occurrence: FR)
  Receive Date: 20220801
  Receipt Date: 20220818
  Transmission Date: 20221026
  Serious: Yes (Other)
  Sender: FDA-Public Use
  Company Number: FR-CELLTRION INC.-2021FR016767

PATIENT

DRUGS (2)
  1. RITUXIMAB [Suspect]
     Active Substance: RITUXIMAB
     Indication: Immune thrombocytopenia
     Dosage: SECOND COURSE OF 1 G, QD ON D1-D15
     Route: 041
  2. RITUXIMAB [Suspect]
     Active Substance: RITUXIMAB
     Dosage: TREATMENT WITH RTX AT A DOSE OF 1 G/DAILY (DAYS 1 - 15) WITH GOOD IMMEDIATE AND DELAYED TOLERANCE
     Route: 041

REACTIONS (2)
  - Serum sickness [Recovered/Resolved]
  - Off label use [Unknown]
